FAERS Safety Report 5174716-6 (Version None)
Quarter: 2006Q4

REPORT INFORMATION
  Report Type: 
  Country: None (occurrence: None)
  Receive Date: 20061214
  Receipt Date: 20061204
  Transmission Date: 20070319
  Serious: Yes (Life-Threatening, Other)
  Sender: FDA-Public Use
  Company Number: GB-ABBOTT-06P-167-0352278-00

PATIENT
  Sex: Male
  Weight: 120 kg

DRUGS (2)
  1. CLARITHROMYCIN [Suspect]
     Indication: DRUG USE FOR UNKNOWN INDICATION
     Route: 048
     Dates: start: 20061028, end: 20061028
  2. CEFUROXIME [Suspect]
     Indication: DRUG USE FOR UNKNOWN INDICATION
     Route: 040
     Dates: start: 20061028, end: 20061028

REACTIONS (4)
  - DYSPNOEA [None]
  - HYPERTENSION [None]
  - RESPIRATORY RATE INCREASED [None]
  - WHEEZING [None]
